FAERS Safety Report 11677667 (Version 1)
Quarter: 2015Q4

REPORT INFORMATION
  Report Type: Spontaneous
  Country: US (occurrence: US)
  Receive Date: 20151027
  Receipt Date: 20151027
  Transmission Date: 20160304
  Serious: No
  Sender: FDA-Public Use
  Company Number: US-ELI_LILLY_AND_COMPANY-US201008002251

PATIENT
  Sex: Male

DRUGS (2)
  1. FORTEO [Suspect]
     Active Substance: TERIPARATIDE
     Indication: OSTEOPOROSIS
     Dosage: 20 UG, DAILY (1/D)
  2. FORTEO [Suspect]
     Active Substance: TERIPARATIDE
     Dosage: 20 UG, DAILY (1/D)

REACTIONS (12)
  - Exostosis [Unknown]
  - Dry throat [Unknown]
  - Constipation [Unknown]
  - Arthralgia [Unknown]
  - Blood pressure decreased [Unknown]
  - Asthenia [Unknown]
  - Malaise [Unknown]
  - Infrequent bowel movements [Unknown]
  - Chills [Recovering/Resolving]
  - Feeling abnormal [Unknown]
  - Eye disorder [Unknown]
  - Fatigue [Unknown]
